FAERS Safety Report 9087490 (Version 2)
Quarter: 2013Q1

REPORT INFORMATION
  Report Type: Spontaneous
  Country: US (occurrence: US)
  Receive Date: 20130217
  Receipt Date: 20130222
  Transmission Date: 20140127
  Serious: Yes (Life-Threatening, Hospitalization)
  Sender: FDA-Public Use
  Company Number: US-JNJFOC-20130207413

PATIENT
  Age: 83 Year
  Sex: Female
  Weight: 90.3 kg

DRUGS (14)
  1. XARELTO [Suspect]
     Indication: CEREBROVASCULAR ACCIDENT PROPHYLAXIS
     Route: 048
     Dates: start: 20120319, end: 20120925
  2. XARELTO [Suspect]
     Indication: ATRIAL FIBRILLATION
     Route: 048
     Dates: start: 20120319, end: 20120925
  3. ASPIRIN [Suspect]
     Indication: PRODUCT USED FOR UNKNOWN INDICATION
     Route: 048
  4. MELOXICAM [Suspect]
     Indication: PRODUCT USED FOR UNKNOWN INDICATION
     Route: 048
  5. ALBUTEROL [Concomitant]
     Route: 065
  6. IPRATROPIUM [Concomitant]
     Route: 065
  7. ALPRAZOLAM [Concomitant]
     Dosage: AS NEEDED AT THE HOURS OF SLEEP
     Route: 048
  8. CEFPODOXIME [Concomitant]
     Route: 048
  9. DILTIAZEM [Concomitant]
     Route: 048
  10. LASIX [Concomitant]
     Route: 048
  11. LEVOTHYROXINE [Concomitant]
     Route: 048
  12. LOVASTATIN [Concomitant]
     Route: 048
  13. PREDNISONE [Concomitant]
     Route: 048
  14. SOTALOL [Concomitant]
     Route: 048

REACTIONS (9)
  - Haemorrhage intracranial [Recovered/Resolved]
  - Upper gastrointestinal haemorrhage [Recovered/Resolved]
  - Haemorrhagic anaemia [Recovered/Resolved]
  - Abasia [Recovered/Resolved]
  - Headache [Recovered/Resolved]
  - Dizziness [Recovered/Resolved]
  - Melaena [Recovered/Resolved]
  - Gait disturbance [Recovered/Resolved]
  - Weight decreased [Unknown]
